FAERS Safety Report 7321525-5 (Version None)
Quarter: 2011Q1

REPORT INFORMATION
  Report Type: 
  Country: None (occurrence: None)
  Receive Date: 20110228
  Receipt Date: 20100226
  Transmission Date: 20110831
  Serious: No
  Sender: FDA-Public Use
  Company Number: A0847053A

PATIENT
  Age: 57 Year
  Sex: Female

DRUGS (5)
  1. PROGESTERONE [Concomitant]
  2. UNKNOWN MEDICATION [Concomitant]
  3. MINERAL TAB [Concomitant]
  4. VALTREX [Suspect]
     Indication: HUMAN EHRLICHIOSIS
     Dosage: 500MG THREE TIMES PER DAY
     Route: 048
     Dates: start: 20091222
  5. HERBAL MEDICATION [Concomitant]

REACTIONS (1)
  - THERAPEUTIC RESPONSE UNEXPECTED [None]
